FAERS Safety Report 8922352 (Version 1)
Quarter: 2012Q4

REPORT INFORMATION
  Report Type: 
  Country: US (occurrence: US)
  Receive Date: 20121126
  Receipt Date: 20121126
  Transmission Date: 20130627
  Serious: Yes (Hospitalization)
  Sender: FDA-Public Use
  Company Number: US-AMGEN-USASP2012073944

PATIENT
  Age: 66 Year
  Sex: Male

DRUGS (1)
  1. ENBREL [Suspect]
     Indication: PSORIATIC ARTHROPATHY
     Dosage: 50 mg, 2 times/wk
     Dates: start: 20090401, end: 201112

REACTIONS (3)
  - Knee arthroplasty [Recovered/Resolved]
  - Osteoarthritis [Recovered/Resolved]
  - Psoriasis [Not Recovered/Not Resolved]
